FAERS Safety Report 4535762-6 (Version None)
Quarter: 2004Q4

REPORT INFORMATION
  Report Type: 
  Country: None (occurrence: None)
  Receive Date: 20041223
  Receipt Date: 20040219
  Transmission Date: 20050328
  Serious: No
  Sender: FDA-Public Use
  Company Number: US-GLAXOSMITHKLINE-A0498832A

PATIENT
  Age: 68 Year
  Sex: Female

DRUGS (7)
  1. FLONASE [Suspect]
     Dosage: 50MCG PER DAY
     Route: 045
     Dates: end: 20040215
  2. HEART MEDICATION [Concomitant]
     Route: 065
  3. ALTACE [Concomitant]
  4. LASIX [Concomitant]
     Route: 065
  5. PREMARIN [Concomitant]
  6. SLO-K [Concomitant]
     Route: 065
  7. MULTIVITAMIN [Concomitant]

REACTIONS (5)
  - AGEUSIA [None]
  - ANOSMIA [None]
  - EAR PAIN [None]
  - EPISTAXIS [None]
  - PHARYNGOLARYNGEAL PAIN [None]
